FAERS Safety Report 12772398 (Version 1)
Quarter: 2016Q3

REPORT INFORMATION
  Report Type: Spontaneous
  Country: GR (occurrence: GR)
  Receive Date: 20160922
  Receipt Date: 20160922
  Transmission Date: 20161109
  Serious: Yes (Hospitalization, Other)
  Sender: FDA-Public Use
  Company Number: GR-PFIZER INC-2016439538

PATIENT
  Age: 38 Year
  Sex: Female

DRUGS (4)
  1. MANNITOL. [Suspect]
     Active Substance: MANNITOL
     Indication: ENCEPHALITIS VIRAL
  2. PHENYTOIN. [Suspect]
     Active Substance: PHENYTOIN
     Indication: ENCEPHALITIS VIRAL
  3. ACYCLOVIR /00587301/ [Suspect]
     Active Substance: ACYCLOVIR
     Indication: ENCEPHALITIS VIRAL
     Dosage: 2250 MG, DAILY
  4. DEXAMETHASONE. [Suspect]
     Active Substance: DEXAMETHASONE
     Indication: ENCEPHALITIS VIRAL
     Dosage: 32 MG, DAILY

REACTIONS (3)
  - Condition aggravated [Unknown]
  - Sepsis [Unknown]
  - Encephalitis viral [Unknown]
